FAERS Safety Report 25051694 (Version 1)
Quarter: 2025Q1

REPORT INFORMATION
  Report Type: Spontaneous
  Country: JP (occurrence: NL)
  Receive Date: 20250307
  Receipt Date: 20250307
  Transmission Date: 20250408
  Serious: Yes (Disabling)
  Sender: ANI
  Company Number: JP-ANIPHARMA-2025-NL-000002

PATIENT
  Age: 53 Year
  Sex: Female
  Weight: 85 kg

DRUGS (1)
  1. CANDESARTAN CILEXETIL [Suspect]
     Active Substance: CANDESARTAN CILEXETIL
     Indication: Hypertension
     Route: 048
     Dates: start: 20190301, end: 20250201

REACTIONS (4)
  - Arthralgia [Recovered/Resolved with Sequelae]
  - Muscle spasms [Recovered/Resolved]
  - Myalgia [Recovered/Resolved]
  - Musculoskeletal stiffness [Recovered/Resolved]
